FAERS Safety Report 9679517 (Version 1)
Quarter: 2013Q4

REPORT INFORMATION
  Report Type: Spontaneous
  Country: US (occurrence: US)
  Receive Date: 20131109
  Receipt Date: 20131109
  Transmission Date: 20140711
  Serious: No
  Sender: FDA-Public Use
  Company Number: US-SANOFI-AVENTIS-2013SA069298

PATIENT
  Sex: Female

DRUGS (2)
  1. ALLEGRA-D [Suspect]
     Indication: NASOPHARYNGITIS
     Dates: start: 20130628
  2. AMOXICILLIN [Concomitant]
     Indication: NASOPHARYNGITIS

REACTIONS (1)
  - Mucous stools [Not Recovered/Not Resolved]
